FAERS Safety Report 16327314 (Version 1)
Quarter: 2019Q2

REPORT INFORMATION
  Report Type: Spontaneous
  Country: IT (occurrence: IT)
  Receive Date: 20190517
  Receipt Date: 20190517
  Transmission Date: 20190711
  Serious: Yes (Hospitalization, Other)
  Sender: FDA-Public Use
  Company Number: IT-MYLANLABS-2019M1046537

PATIENT
  Age: 99 Year
  Sex: Male

DRUGS (3)
  1. XANAX [Suspect]
     Active Substance: ALPRAZOLAM
     Indication: ANXIETY
     Dosage: 0.25 MILLIGRAM, QD
     Route: 048
     Dates: start: 20180710, end: 20180715
  2. DELTACORTENE [Suspect]
     Active Substance: PREDNISONE
     Indication: INFLAMMATION
     Dosage: 25 MILLIGRAM, QD
     Route: 048
     Dates: start: 20180710, end: 20180715
  3. DUTASTERIDE. [Suspect]
     Active Substance: DUTASTERIDE
     Indication: BENIGN PROSTATIC HYPERPLASIA
     Dosage: UNK
     Route: 048
     Dates: start: 20180708, end: 20180715

REACTIONS (3)
  - Fluid retention [Recovered/Resolved]
  - Sopor [Recovered/Resolved]
  - Renal failure [Recovered/Resolved]

NARRATIVE: CASE EVENT DATE: 20180714
